FAERS Safety Report 17802984 (Version 1)
Quarter: 2020Q2

REPORT INFORMATION
  Report Type: Spontaneous
  Country: US (occurrence: US)
  Receive Date: 20200519
  Receipt Date: 20200519
  Transmission Date: 20200714
  Serious: Yes (Other)
  Sender: FDA-Public Use
  Company Number: US-PFIZER INC-2020198266

PATIENT
  Age: 45 Year
  Sex: Female
  Weight: 109 kg

DRUGS (2)
  1. NORVASC [Suspect]
     Active Substance: AMLODIPINE BESYLATE
     Dosage: 20 OR 25 MG
  2. NORVASC [Suspect]
     Active Substance: AMLODIPINE BESYLATE
     Indication: HYPERTENSION
     Dosage: 5 MG

REACTIONS (2)
  - Cerebrovascular accident [Unknown]
  - Overdose [Unknown]

NARRATIVE: CASE EVENT DATE: 201309
